FAERS Safety Report 6098123-7 (Version None)
Quarter: 2009Q1

REPORT INFORMATION
  Report Type: 
  Country: None (occurrence: None)
  Receive Date: 20090227
  Receipt Date: 20080304
  Transmission Date: 20090719
  Serious: Yes (Congenital Anomaly)
  Sender: FDA-Public Use
  Company Number: FR-RB-000310-08

PATIENT
  Sex: Male

DRUGS (1)
  1. SUBUTEX [Suspect]
     Route: 064
     Dates: start: 20070320, end: 20071226

REACTIONS (5)
  - DRUG EXPOSURE DURING PREGNANCY [None]
  - FOETAL DISTRESS SYNDROME [None]
  - HYPOPITUITARISM FOETAL [None]
  - LETHARGY [None]
  - UNRESPONSIVE TO STIMULI [None]
